FAERS Safety Report 4939185-7 (Version None)
Quarter: 2006Q1

REPORT INFORMATION
  Report Type: 
  Country: None (occurrence: None)
  Receive Date: 20060309
  Receipt Date: 20060309
  Transmission Date: 20060701
  Serious: Yes (Other)
  Sender: FDA-Public Use
  Company Number: None

PATIENT
  Age: 50 Year
  Sex: Female
  Weight: 48.0813 kg

DRUGS (1)
  1. PRILOSEC OTC [Suspect]
     Indication: BARRETT'S OESOPHAGUS
     Dosage: 20 MG.   2X DAILY   PO
     Route: 048
     Dates: start: 20060224, end: 20060307

REACTIONS (1)
  - PAIN IN EXTREMITY [None]
